FAERS Safety Report 21908708 (Version 1)
Quarter: 2023Q1

REPORT INFORMATION
  Report Type: Spontaneous
  Country: US (occurrence: None)
  Receive Date: 20230124
  Receipt Date: 20230124
  Transmission Date: 20230417
  Serious: Yes (Hospitalization, Disabling)
  Sender: FDA-Public Use
  Company Number: None

PATIENT
  Age: 75 Year
  Sex: Female

DRUGS (20)
  1. CAPECITABINE [Suspect]
     Active Substance: CAPECITABINE
     Indication: Breast cancer female
     Dosage: OTHER QUANTITY : 4 TABLETS;?FREQUENCY : TWICE A DAY;?
     Route: 048
     Dates: start: 20230104
  2. CELEBREX [Concomitant]
  3. METOPROLOL TARTRATE [Concomitant]
     Active Substance: METOPROLOL TARTRATE
  4. FLECTOR [Concomitant]
     Active Substance: DICLOFENAC EPOLAMINE
  5. CALCIUM [Concomitant]
     Active Substance: CALCIUM
  6. CETIRIZINE [Suspect]
     Active Substance: CETIRIZINE HYDROCHLORIDE
  7. maanesium [Concomitant]
  8. mvrbetria [Concomitant]
  9. PERCOCET [Concomitant]
     Active Substance: ACETAMINOPHEN\OXYCODONE HYDROCHLORIDE
  10. POTASSIUM [Concomitant]
     Active Substance: POTASSIUM
  11. SERTRALINE [Concomitant]
     Active Substance: SERTRALINE HYDROCHLORIDE
  12. SPIRONOLACTONE [Concomitant]
     Active Substance: SPIRONOLACTONE
  13. TRELEGY ELLIPTA [Concomitant]
     Active Substance: FLUTICASONE FUROATE\UMECLIDINIUM BROMIDE\VILANTEROL TRIFENATATE
  14. vitamin C [Concomitant]
  15. vitamin D [Concomitant]
  16. XANAX [Concomitant]
  17. XARELTO [Concomitant]
     Active Substance: RIVAROXABAN
  18. LASIX [Concomitant]
     Active Substance: FUROSEMIDE
  19. VITAMIN E [Concomitant]
     Active Substance: .ALPHA.-TOCOPHEROL
  20. MIRALAX [Concomitant]
     Active Substance: POLYETHYLENE GLYCOL 3350

REACTIONS (1)
  - Sepsis [None]

NARRATIVE: CASE EVENT DATE: 20230123
